FAERS Safety Report 21001778 (Version 1)
Quarter: 2022Q2

REPORT INFORMATION
  Report Type: Spontaneous
  Country: US (occurrence: US)
  Receive Date: 20220624
  Receipt Date: 20220624
  Transmission Date: 20220721
  Serious: No
  Sender: FDA-Public Use
  Company Number: US-BioHaven Pharmaceuticals-2022BHV001199

PATIENT
  Age: 64 Year
  Sex: Female

DRUGS (2)
  1. NURTEC ODT [Suspect]
     Active Substance: RIMEGEPANT SULFATE
     Indication: Migraine
     Dosage: TOOK THE PRODUCT 6 DAYS IN A ROW
     Route: 065
  2. NURTEC ODT [Suspect]
     Active Substance: RIMEGEPANT SULFATE
     Dosage: SHE WILL KEEP USING NURTEC BUT WILL TAKE IT EVERY OTHER DAY FROM NOW ON
     Route: 065

REACTIONS (1)
  - Epistaxis [Unknown]
